FAERS Safety Report 10958014 (Version 2)
Quarter: 2015Q2

REPORT INFORMATION
  Report Type: Spontaneous
  Country: US (occurrence: US)
  Receive Date: 20150326
  Receipt Date: 20150410
  Transmission Date: 20150821
  Serious: Yes (Other)
  Sender: FDA-Public Use
  Company Number: US-ELI_LILLY_AND_COMPANY-US201503006284

PATIENT
  Sex: Female

DRUGS (8)
  1. OXYBUTYNIN [Concomitant]
     Active Substance: OXYBUTYNIN
     Indication: PRODUCT USED FOR UNKNOWN INDICATION
     Dosage: UNK, UNKNOWN
     Route: 065
  2. CYMBALTA [Suspect]
     Active Substance: DULOXETINE HYDROCHLORIDE
     Indication: DEPRESSION
  3. CYMBALTA [Suspect]
     Active Substance: DULOXETINE HYDROCHLORIDE
     Indication: FIBROMYALGIA
     Dosage: 30 MG, QD
     Route: 065
     Dates: start: 201502
  4. CYMBALTA [Suspect]
     Active Substance: DULOXETINE HYDROCHLORIDE
     Indication: POST-TRAUMATIC STRESS DISORDER
  5. CYMBALTA [Suspect]
     Active Substance: DULOXETINE HYDROCHLORIDE
     Indication: CRANIOCEREBRAL INJURY
  6. CYMBALTA [Suspect]
     Active Substance: DULOXETINE HYDROCHLORIDE
     Indication: ANXIETY
     Dosage: 60 MG, QD
     Route: 065
     Dates: end: 20150325
  7. CELEBREX [Concomitant]
     Active Substance: CELECOXIB
     Indication: PRODUCT USED FOR UNKNOWN INDICATION
     Dosage: UNK, UNKNOWN
     Route: 065
  8. ZYRTEC [Concomitant]
     Active Substance: CETIRIZINE HYDROCHLORIDE
     Indication: PRODUCT USED FOR UNKNOWN INDICATION
     Dosage: UNK, UNKNOWN
     Route: 065

REACTIONS (15)
  - Blood cortisol decreased [Unknown]
  - Weight decreased [Unknown]
  - Drug ineffective [Unknown]
  - Insomnia [Unknown]
  - Vomiting [Unknown]
  - Anxiety [Unknown]
  - Decreased appetite [Unknown]
  - Addison^s disease [Unknown]
  - Nausea [Unknown]
  - Diarrhoea [Unknown]
  - Tinnitus [Unknown]
  - Breast enlargement [Not Recovered/Not Resolved]
  - Faeces pale [Unknown]
  - Restless legs syndrome [Unknown]
  - Back pain [Unknown]
